FAERS Safety Report 16489365 (Version 2)
Quarter: 2020Q1

REPORT INFORMATION
  Report Type: Spontaneous
  Country: US (occurrence: US)
  Receive Date: 20190628
  Receipt Date: 20200227
  Transmission Date: 20200409
  Serious: No
  Sender: FDA-Public Use
  Company Number: US-PFIZER INC-2019262525

PATIENT
  Age: 73 Year
  Sex: Female
  Weight: 104 kg

DRUGS (30)
  1. XELJANZ XR [Suspect]
     Active Substance: TOFACITINIB CITRATE
     Indication: RHEUMATOID ARTHRITIS
     Dosage: 11 MG, 1X/DAY
     Route: 048
  2. TRAMADOL HCL [Concomitant]
     Active Substance: TRAMADOL HYDROCHLORIDE
     Indication: OSTEOARTHRITIS
     Dosage: 50 MG, AS NEEDED(1 TABLET AS NEEDED ORALLY QHS (EVERY NIGHT AT BEDTIME) PRN (AS NEEDED))
     Route: 048
  3. XALATAN [Concomitant]
     Active Substance: LATANOPROST
     Dosage: 1 DF, 1X/DAY1 (SOLUTION OPHTHALMIC QHS (EVERY NIGHT AT BEDTIME))
     Route: 047
  4. TRAZODONE HYDROCHLORIDE. [Concomitant]
     Active Substance: TRAZODONE HYDROCHLORIDE
     Dosage: 50 MG, 1X/DAY (1 ORALLY QHS (EVERY NIGHT AT BEDTIME))
     Route: 048
  5. MIRAPEX [Concomitant]
     Active Substance: PRAMIPEXOLE DIHYDROCHLORIDE
     Dosage: 0.5 MG, 1X/DAY
     Route: 048
  6. TRELEGY ELLIPTA [Concomitant]
     Active Substance: FLUTICASONE FUROATE\UMECLIDINIUM BROMIDE\VILANTEROL TRIFENATATE
     Dosage: 1 DF, 1X/DAY (100-62.5-25 MCG/INH AEROSOL POWDER BREATH ACTIVATED 1 PUFF INHALATION ONCE A DAY)
  7. FUROSEMIDE. [Concomitant]
     Active Substance: FUROSEMIDE
     Dosage: 20 MG, 1X/DAY
     Route: 048
  8. ALBUTEROL SULFATE. [Concomitant]
     Active Substance: ALBUTEROL SULFATE
     Dosage: UNK
  9. TOUJEO [Concomitant]
     Active Substance: INSULIN GLARGINE
     Dosage: 300 IU/ML, AS NEEDED (300 UNIT/ML SOLUTION, PEN-INJECTOR 1 SUBCUTANEOUS PRN (AS NEEDED)
     Route: 058
  10. NEURONTIN [Concomitant]
     Active Substance: GABAPENTIN
     Indication: OSTEOARTHRITIS
     Dosage: 200 MG, 2X/DAY (2 CAPSULES TWICE A DAY)
     Route: 048
  11. ATORVASTATIN CALCIUM. [Concomitant]
     Active Substance: ATORVASTATIN CALCIUM
     Dosage: 40 MG, 1X/DAY
     Route: 048
  12. VITAMIN D3 [Concomitant]
     Active Substance: CHOLECALCIFEROL
     Dosage: 2000 IU, 1X/DAY
     Route: 048
  13. ASPIRIN 81 [Concomitant]
     Active Substance: ASPIRIN
     Dosage: 81 MG, 1X/DAY
     Route: 048
  14. PREDNISONE. [Concomitant]
     Active Substance: PREDNISONE
     Indication: RHEUMATOID ARTHRITIS
     Dosage: 5 MG, 1X/DAY (WITH FOOD OR MILK)
     Route: 048
  15. LOTRISONE [Concomitant]
     Active Substance: BETAMETHASONE DIPROPIONATE\CLOTRIMAZOLE
     Dosage: 1 DF, 2X/DAY(1-0.05% CREAM 1 APPLICATION TO AFFECTED AREA EXTERNALLY TWICE A DAY)
  16. LISINOPRIL. [Concomitant]
     Active Substance: LISINOPRIL
     Dosage: UNK
  17. ALLOPURINOL. [Concomitant]
     Active Substance: ALLOPURINOL
     Indication: HYPERURICAEMIA
     Dosage: 100 MG, 1X/DAY
     Route: 048
  18. VOLTAREN [Concomitant]
     Active Substance: DICLOFENAC SODIUM
     Dosage: 2 G, 2X/DAY (EXTERNALLY )
  19. FOLIC ACID. [Concomitant]
     Active Substance: FOLIC ACID
     Dosage: 1 MG, 1X/DAY
     Route: 048
  20. DEPO-MEDROL WITH LIDOCAINE [Concomitant]
     Active Substance: LIDOCAINE HYDROCHLORIDE\METHYLPREDNISOLONE ACETATE
     Dosage: 40 MG, UNK (SHOULDER INJECTION)
     Route: 030
  21. OMEPRAZOLE. [Concomitant]
     Active Substance: OMEPRAZOLE
     Dosage: 40 MG, 1X/DAY
     Route: 048
  22. IRON [Concomitant]
     Active Substance: IRON
     Dosage: UNK
  23. METOPROLOL TARTRATE. [Concomitant]
     Active Substance: METOPROLOL TARTRATE
     Dosage: 50 MG, 2X/DAY
     Route: 048
  24. XELJANZ XR [Suspect]
     Active Substance: TOFACITINIB CITRATE
     Indication: OSTEOARTHRITIS
  25. RESTASIS [Concomitant]
     Active Substance: CYCLOSPORINE
     Dosage: 1 DF, AS NEEDED(EMULSION 1 OPHTHALMIC QD (ONE A DAY) PRN (AS NEEDED))
     Route: 047
  26. TESSALON [Concomitant]
     Active Substance: BENZONATATE
     Dosage: 100 MG, AS NEEDED(1 CAPSULE AS NEEDED ORALLY THREE TIMES A DAY)
     Route: 048
  27. METFORMIN HCL [Concomitant]
     Active Substance: METFORMIN HYDROCHLORIDE
     Dosage: 500 MG, 2X/DAY
     Route: 048
  28. NYSTATIN. [Concomitant]
     Active Substance: NYSTATIN
     Dosage: UNK
  29. BREO ELLIPTA [Concomitant]
     Active Substance: FLUTICASONE FUROATE\VILANTEROL TRIFENATATE
     Dosage: UNK
  30. CALTRATE [Concomitant]
     Active Substance: CALCIUM CARBONATE
     Indication: OSTEOPOROSIS PROPHYLAXIS
     Dosage: 1 DF, 2X/DAY

REACTIONS (1)
  - Rash [Recovered/Resolved]
